FAERS Safety Report 15737539 (Version 1)
Quarter: 2018Q4

REPORT INFORMATION
  Report Type: Report from Study
  Country: CO (occurrence: CO)
  Receive Date: 20181219
  Receipt Date: 20181219
  Transmission Date: 20190205
  Serious: Yes (Hospitalization)
  Sender: FDA-Public Use
  Company Number: PHHY2018CO188948

PATIENT
  Sex: Female
  Weight: 16 kg

DRUGS (1)
  1. JADENU [Suspect]
     Active Substance: DEFERASIROX
     Indication: IRON OVERLOAD
     Dosage: 180 MG, QD
     Route: 048
     Dates: start: 20180529

REACTIONS (2)
  - Somnolence [Unknown]
  - Pain [Unknown]
